FAERS Safety Report 12388807 (Version 2)
Quarter: 2016Q2

REPORT INFORMATION
  Report Type: Spontaneous
  Country: US (occurrence: US)
  Receive Date: 20160520
  Receipt Date: 20160627
  Transmission Date: 20160815
  Serious: Yes (Hospitalization, Other)
  Sender: FDA-Public Use
  Company Number: PHEH2016US012453

PATIENT
  Sex: Male

DRUGS (1)
  1. GILENYA [Suspect]
     Active Substance: FINGOLIMOD HYDROCHLORIDE
     Indication: MULTIPLE SCLEROSIS
     Dosage: 0.5 MG, QD
     Route: 048

REACTIONS (4)
  - Pneumonia viral [Recovered/Resolved]
  - Pneumonia streptococcal [Recovered/Resolved]
  - Pneumonia [Recovering/Resolving]
  - Viral sepsis [Recovered/Resolved]

NARRATIVE: CASE EVENT DATE: 20160502
